FAERS Safety Report 7763342-8 (Version None)
Quarter: 2011Q3

REPORT INFORMATION
  Report Type: 
  Country: None (occurrence: None)
  Receive Date: 20110920
  Receipt Date: 20110708
  Transmission Date: 20111222
  Serious: No
  Sender: FDA-Public Use
  Company Number: US-BAUSCH-2011BL004464

PATIENT
  Age: 68 Year
  Sex: Female

DRUGS (2)
  1. BESIVANCE [Suspect]
     Indication: ANTIBIOTIC PROPHYLAXIS
     Route: 047
     Dates: start: 20110607, end: 20110607
  2. AVASTIN [Concomitant]
     Indication: MACULAR DEGENERATION
     Route: 047
     Dates: start: 20110607, end: 20110607

REACTIONS (1)
  - VISION BLURRED [None]
